FAERS Safety Report 9179334 (Version 3)
Quarter: 2016Q4

REPORT INFORMATION
  Report Type: Spontaneous
  Country: US (occurrence: US)
  Receive Date: 20130321
  Receipt Date: 20161219
  Transmission Date: 20170207
  Serious: Yes (Death)
  Sender: FDA-Public Use
  Company Number: US-SANOFI-AVENTIS-2013SA028516

PATIENT
  Age: 74 Year
  Sex: Male

DRUGS (47)
  1. LASIX [Concomitant]
     Active Substance: FUROSEMIDE
     Dosage: FREQUENCY: QD/ PRN
     Route: 048
  2. KLOR-CON [Concomitant]
     Active Substance: POTASSIUM CHLORIDE
     Dosage: SUSTAINED ACTION TABLET
     Route: 048
  3. SYNTHROID [Concomitant]
     Active Substance: LEVOTHYROXINE SODIUM
     Route: 048
  4. KEFLEX [Concomitant]
     Active Substance: CEPHALEXIN
  5. LENOXIN [Concomitant]
  6. ALFUZOSIN HYDROCHLORIDE. [Concomitant]
     Active Substance: ALFUZOSIN HYDROCHLORIDE
     Route: 048
  7. OXYBUTYNIN CHLORIDE. [Concomitant]
     Active Substance: OXYBUTYNIN CHLORIDE
     Route: 048
  8. FLUOXETINE HYDROCHLORIDE. [Concomitant]
     Active Substance: FLUOXETINE HYDROCHLORIDE
     Route: 048
  9. COUMADIN [Concomitant]
     Active Substance: WARFARIN SODIUM
  10. CHONDROITIN SULFATE/GLUCOSAMINE [Concomitant]
     Route: 048
  11. VITAMIN C [Concomitant]
     Active Substance: ASCORBIC ACID
     Route: 048
  12. VITAMIN E [Concomitant]
     Active Substance: .ALPHA.-TOCOPHEROL
     Route: 048
  13. DOXAZOSIN [Concomitant]
     Active Substance: DOXAZOSIN\DOXAZOSIN MESYLATE
     Route: 048
  14. GLUCOSAMINE [Concomitant]
     Active Substance: GLUCOSAMINE
  15. ECOTRIN [Concomitant]
     Active Substance: ASPIRIN
  16. NITROSTAT [Concomitant]
     Active Substance: NITROGLYCERIN
  17. CORTANE B OTIC [Concomitant]
     Dosage: PUT 2 DROPS IN AFFECTED EAR QID
     Dates: start: 20100525
  18. AMLODIPINE BESILATE [Concomitant]
     Active Substance: AMLODIPINE BESYLATE
     Route: 048
     Dates: start: 20100525
  19. FLUNISOLIDE. [Concomitant]
     Active Substance: FLUNISOLIDE
     Indication: RHINITIS ALLERGIC
     Dosage: SPRAY TWO SPRAYS IN EACH NOSTRIL TWICE A DAY AS NEEDED
     Dates: start: 20110323, end: 20120323
  20. DIGOXIN. [Concomitant]
     Active Substance: DIGOXIN
     Route: 048
  21. NORVASC [Concomitant]
     Active Substance: AMLODIPINE BESYLATE
     Dosage: FREQUENCY: Q AM
     Route: 048
  22. DARVOCET [Concomitant]
     Active Substance: ACETAMINOPHEN\PROPOXYPHENE HYDROCHLORIDE
     Dosage: EVERY 4 HOURS AS NEEDED NOT TO  EXCEED 6 TABLETS PER  24HRS
     Route: 048
     Dates: start: 20100629
  23. PLAVIX [Suspect]
     Active Substance: CLOPIDOGREL BISULFATE
     Indication: ANGIOPATHY
     Route: 048
     Dates: start: 20090507, end: 20110327
  24. FIBER [Concomitant]
     Active Substance: PSYLLIUM HUSK
     Route: 048
  25. DILTIAZEM. [Concomitant]
     Active Substance: DILTIAZEM
  26. PROZAC [Concomitant]
     Active Substance: FLUOXETINE HYDROCHLORIDE
  27. LORTAB [Concomitant]
     Active Substance: ACETAMINOPHEN\HYDROCODONE BITARTRATE
  28. ALTACE [Concomitant]
     Active Substance: RAMIPRIL
  29. CARDURA [Concomitant]
     Active Substance: DOXAZOSIN MESYLATE
  30. IBUPROFEN. [Concomitant]
     Active Substance: IBUPROFEN
     Indication: PAIN
     Route: 048
     Dates: start: 20100415, end: 20110416
  31. IBUPROFEN. [Concomitant]
     Active Substance: IBUPROFEN
     Indication: INFLAMMATION
     Route: 048
     Dates: start: 20100415, end: 20110416
  32. TAMSULOSIN HYDROCHLORIDE. [Concomitant]
     Active Substance: TAMSULOSIN HYDROCHLORIDE
     Route: 048
  33. FLUTICASONE PROPIONATE. [Concomitant]
     Active Substance: FLUTICASONE PROPIONATE
     Dosage: 1 SPRAY EACH NOSTRIL DAILY AS NEEDED
  34. AVODART [Concomitant]
     Active Substance: DUTASTERIDE
     Route: 048
  35. LEVOXYL [Concomitant]
     Active Substance: LEVOTHYROXINE SODIUM
  36. VITAMIN B COMPLEX [Concomitant]
     Active Substance: CYANOCOBALAMIN\DEXPANTHENOL\NIACINAMIDE\PYRIDOXINE HYDROCHLORIDE\RIBOFLAVIN 5^-PHOSPHATE SODIUM\THIAMINE HYDROCHLORIDE\VITAMIN B COMPLEX
     Route: 048
  37. LISINOPRIL. [Concomitant]
     Active Substance: LISINOPRIL
     Route: 048
  38. MECLIZINE [Concomitant]
     Active Substance: MECLIZINE HYDROCHLORIDE
     Indication: DIZZINESS
     Dosage: 1-2 TABLET
     Route: 048
     Dates: start: 20110323, end: 20120323
  39. DIGITEK [Concomitant]
     Active Substance: DIGOXIN
  40. LOTENSIN [Concomitant]
     Active Substance: BENAZEPRIL HYDROCHLORIDE
  41. ASPIRIN. [Suspect]
     Active Substance: ASPIRIN
     Indication: PRODUCT USED FOR UNKNOWN INDICATION
  42. LIPITOR [Concomitant]
     Active Substance: ATORVASTATIN CALCIUM
     Route: 048
  43. FLUOXETINE HYDROCHLORIDE. [Concomitant]
     Active Substance: FLUOXETINE HYDROCHLORIDE
     Dosage: FREQUENCY: Q AM
     Route: 048
  44. METOPROLOL SUCCINATE. [Concomitant]
     Active Substance: METOPROLOL SUCCINATE
     Dosage: SUSTAINED RELEASE TABLET
     Route: 048
  45. PANTHENOL/RETINOL/THIAMINE HYDROCHLORIDE/ASCORBIC ACID/ERGOCALCIFEROL/FOLIC ACID/RIBOFLAVIN/NICOTINA [Concomitant]
     Route: 048
     Dates: start: 20110104, end: 20120105
  46. DUTASTERIDE. [Concomitant]
     Active Substance: DUTASTERIDE
  47. ALBUTEROL. [Concomitant]
     Active Substance: ALBUTEROL
     Route: 055

REACTIONS (2)
  - Brain stem haemorrhage [Fatal]
  - Cerebral haemorrhage [Fatal]

NARRATIVE: CASE EVENT DATE: 201103
